FAERS Safety Report 18153566 (Version 1)
Quarter: 2020Q3

REPORT INFORMATION
  Report Type: Spontaneous
  Country: KR (occurrence: KR)
  Receive Date: 20200816
  Receipt Date: 20200816
  Transmission Date: 20201103
  Serious: Yes (Death, Life-Threatening, Other)
  Sender: FDA-Public Use
  Company Number: KR-UNITED THERAPEUTICS-UNT-2020-012033

PATIENT
  Sex: Male
  Weight: 2.01 kg

DRUGS (2)
  1. NITRIC OXIDE. [Concomitant]
     Active Substance: NITRIC OXIDE
     Indication: PRODUCT USED FOR UNKNOWN INDICATION
     Dosage: UNK
     Route: 065
  2. REMODULIN [Suspect]
     Active Substance: TREPROSTINIL
     Indication: PRODUCT USED FOR UNKNOWN INDICATION
     Dosage: UNK, CONTINUING
     Route: 058

REACTIONS (9)
  - Hypotension [Not Recovered/Not Resolved]
  - Vena cava thrombosis [Unknown]
  - Bradycardia [Unknown]
  - Oxygen saturation decreased [Unknown]
  - Perinephric collection [Unknown]
  - Anuria [Not Recovered/Not Resolved]
  - Hyponatraemia [Unknown]
  - Renal vein thrombosis [Unknown]
  - Cardiac arrest [Fatal]

NARRATIVE: CASE EVENT DATE: 2017
